FAERS Safety Report 18974849 (Version 2)
Quarter: 2021Q2

REPORT INFORMATION
  Report Type: Report from Study
  Country: JP (occurrence: JP)
  Receive Date: 20210305
  Receipt Date: 20210412
  Transmission Date: 20210717
  Serious: Yes (Other)
  Sender: FDA-Public Use
  Company Number: JP-TAKEDA-2021TUS014229

PATIENT

DRUGS (7)
  1. MELPHALAN. [Concomitant]
     Active Substance: MELPHALAN
     Indication: PLASMA CELL MYELOMA
     Dosage: UNK
     Route: 065
  2. BORTEZOMIB. [Suspect]
     Active Substance: BORTEZOMIB
     Indication: PLASMA CELL MYELOMA
     Dosage: 1.3 MILLIGRAM/SQ. METER, 2/WEEK
     Route: 058
  3. LENALIDOMIDE HYDRATE [Concomitant]
     Active Substance: LENALIDOMIDE
     Indication: PLASMA CELL MYELOMA
     Dosage: 25 MILLIGRAM, QD
     Route: 048
  4. LENALIDOMIDE HYDRATE [Concomitant]
     Active Substance: LENALIDOMIDE
     Dosage: 10 MILLIGRAM, QD
     Route: 048
  5. DEXAMETHASONE. [Concomitant]
     Active Substance: DEXAMETHASONE
     Indication: PLASMA CELL MYELOMA
     Dosage: UNK
     Route: 065
  6. CARFILZOMIB [Concomitant]
     Active Substance: CARFILZOMIB
     Indication: PLASMA CELL MYELOMA
     Dosage: UNK
     Route: 041
  7. CYCLOPHOSPHAMIDE HYDRATE [Concomitant]
     Active Substance: CYCLOPHOSPHAMIDE
     Indication: PLASMA CELL MYELOMA
     Dosage: UNK, QD
     Route: 041

REACTIONS (22)
  - Infection [Unknown]
  - Diarrhoea [Unknown]
  - Arterial thrombosis [Unknown]
  - Ileus [Unknown]
  - Tumour lysis syndrome [Unknown]
  - Pneumonia [Unknown]
  - Pulmonary embolism [Unknown]
  - Respiratory failure [Unknown]
  - Neuropathy peripheral [Unknown]
  - Blood alkaline phosphatase increased [Unknown]
  - Decreased appetite [Unknown]
  - Syncope [Unknown]
  - Myelosuppression [Unknown]
  - Aspartate aminotransferase increased [Unknown]
  - Spinal compression fracture [Unknown]
  - Hyperkalaemia [Unknown]
  - Hypertension [Unknown]
  - Orthostatic hypotension [Unknown]
  - Nervous system disorder [Unknown]
  - Rash [Unknown]
  - Alanine aminotransferase increased [Unknown]
  - Oedema peripheral [Unknown]
